FAERS Safety Report 7772359-9 (Version None)
Quarter: 2011Q3

REPORT INFORMATION
  Report Type: 
  Country: None (occurrence: None)
  Receive Date: 20110922
  Receipt Date: 20110913
  Transmission Date: 20111222
  Serious: Yes (Hospitalization)
  Sender: FDA-Public Use
  Company Number: NL-NOVOPROD-335038

PATIENT

DRUGS (3)
  1. VICTOZA [Suspect]
     Indication: TYPE 2 DIABETES MELLITUS
     Dosage: 1.8 MG, QD
     Route: 065
     Dates: start: 20100318, end: 20110602
  2. METFORMIN [Concomitant]
     Dosage: 500 MG, BID
     Dates: start: 20090101
  3. GLIMEPIRIDE [Concomitant]
     Dosage: 3 MG, BID
     Dates: start: 20090101

REACTIONS (1)
  - PANCREATITIS [None]
